FAERS Safety Report 9359138 (Version 1)
Quarter: 2013Q2

REPORT INFORMATION
  Report Type: Spontaneous
  Country: CA (occurrence: CA)
  Receive Date: 20130620
  Receipt Date: 20130620
  Transmission Date: 20140414
  Serious: Yes (Hospitalization)
  Sender: FDA-Public Use
  Company Number: CA-B.I. PHARMACEUTICALS,INC./RIDGEFIELD-2013-CN-01113CN

PATIENT
  Age: 82 Year
  Sex: Female
  Weight: 75 kg

DRUGS (4)
  1. PRADAX [Suspect]
     Dosage: 300 MG
     Route: 048
  2. METOPROLOL [Concomitant]
  3. PLANTAGO SEED [Concomitant]
  4. VALSARTAN [Concomitant]

REACTIONS (4)
  - Creatinine renal clearance decreased [Recovered/Resolved]
  - Haematochezia [Recovered/Resolved]
  - Haemoglobin decreased [Recovered/Resolved]
  - Melaena [Recovered/Resolved]
